FAERS Safety Report 18484372 (Version 4)
Quarter: 2020Q4

REPORT INFORMATION
  Report Type: Spontaneous
  Country: JP (occurrence: JP)
  Receive Date: 20201110
  Receipt Date: 20201230
  Transmission Date: 20210114
  Serious: Yes (Death, Disabling, Other)
  Sender: FDA-Public Use
  Company Number: JP-ROCHE-2710235

PATIENT
  Age: 45 Year
  Sex: Female
  Weight: 66 kg

DRUGS (5)
  1. AVASTIN [Suspect]
     Active Substance: BEVACIZUMAB
     Route: 041
     Dates: start: 20200925, end: 20201023
  2. PACLITAXEL. [Suspect]
     Active Substance: PACLITAXEL
     Indication: BREAST CANCER
     Dosage: THREE WEEKS ON ONE WEEK OFF
     Route: 041
     Dates: start: 20200521, end: 20201023
  3. RANMARK [Concomitant]
     Active Substance: DENOSUMAB
     Dosage: DOSAGE IS UNCERTAIN.
     Route: 065
     Dates: start: 20200513, end: 20201009
  4. AVASTIN [Suspect]
     Active Substance: BEVACIZUMAB
     Indication: BREAST CANCER
     Route: 041
     Dates: start: 20200521, end: 20200619
  5. AVASTIN [Suspect]
     Active Substance: BEVACIZUMAB
     Route: 041
     Dates: start: 20200703, end: 20200814

REACTIONS (3)
  - Cerebral haemorrhage [Recovered/Resolved with Sequelae]
  - Disease progression [Fatal]
  - Posterior reversible encephalopathy syndrome [Recovered/Resolved with Sequelae]

NARRATIVE: CASE EVENT DATE: 20201026
